FAERS Safety Report 14230554 (Version 1)
Quarter: 2017Q4

REPORT INFORMATION
  Report Type: Spontaneous
  Country: US (occurrence: US)
  Receive Date: 20171128
  Receipt Date: 20171128
  Transmission Date: 20180321
  Serious: Yes (Other)
  Sender: FDA-Public Use
  Company Number: US-ANTARES PHARMA, INC.-2017-LIT-ME-0409

PATIENT
  Age: 67 Year
  Sex: Male

DRUGS (2)
  1. METHOTREXATE. [Suspect]
     Active Substance: METHOTREXATE
     Indication: PSORIATIC ARTHROPATHY
  2. RAPAMYCIN [Suspect]
     Active Substance: SIROLIMUS
     Indication: PSORIATIC ARTHROPATHY

REACTIONS (3)
  - Dyspnoea [Unknown]
  - Metastasis [Unknown]
  - Off label use [Unknown]
